FAERS Safety Report 7218666-X (Version None)
Quarter: 2011Q1

REPORT INFORMATION
  Report Type: 
  Country: None (occurrence: None)
  Receive Date: 20110110
  Receipt Date: 20100823
  Transmission Date: 20110831
  Serious: No
  Sender: FDA-Public Use
  Company Number: US-ABBOTT-10P-163-0666795-00

PATIENT
  Sex: Female

DRUGS (1)
  1. VICODIN [Suspect]
     Indication: PAIN
     Dosage: 5/500MG, 1 IN 6 HOURS, FOUR TIMES DAILY
     Route: 048

REACTIONS (1)
  - PAIN [None]
